FAERS Safety Report 6538881-8 (Version None)
Quarter: 2010Q1

REPORT INFORMATION
  Report Type: 
  Country: None (occurrence: None)
  Receive Date: 20100115
  Receipt Date: 20100105
  Transmission Date: 20100710
  Serious: Yes (Hospitalization)
  Sender: FDA-Public Use
  Company Number: NZ-NOVOPROD-300853

PATIENT
  Age: 3 Year
  Sex: Male
  Weight: 12.8 kg

DRUGS (4)
  1. NORDITROPIN [Suspect]
     Indication: GROWTH HORMONE DEFICIENCY
     Dosage: 0.5 ML, QD (WHEN BEING COMPLIANT)
     Route: 058
     Dates: start: 20080501
  2. HYDROCORTISONE [Concomitant]
     Dosage: 5 MG, 5 TIMES A DAY
  3. HYDROCORTISONE [Concomitant]
     Dosage: 5 MG, TID
  4. HYDROCORTISONE [Concomitant]
     Dosage: 2.5 MG, BID

REACTIONS (2)
  - HYPOGLYCAEMIC SEIZURE [None]
  - VIRAL INFECTION [None]
